FAERS Safety Report 5694197-3 (Version None)
Quarter: 2008Q2

REPORT INFORMATION
  Report Type: 
  Country: None (occurrence: None)
  Receive Date: 20080402
  Receipt Date: 20080321
  Transmission Date: 20081010
  Serious: Yes (Hospitalization)
  Sender: FDA-Public Use
  Company Number: 2008-01016

PATIENT
  Age: 77 Year
  Sex: Female
  Weight: 42 kg

DRUGS (10)
  1. VELCADE [Suspect]
     Indication: MULTIPLE MYELOMA
     Dosage: 1.70 MG, INTRAVENOUS
     Route: 042
     Dates: start: 20070928, end: 20071008
  2. DEXAMETHASONE [Suspect]
     Indication: MULTIPLE MYELOMA
     Dosage: 1.00 MG, ORAL
     Route: 048
     Dates: start: 20070930, end: 20071016
  3. FUNGUARD(MICAFUNGIN SODIUM) [Suspect]
     Indication: PNEUMONIA FUNGAL
     Dosage: 150.00 MG, INTRAVENOUS
     Route: 042
     Dates: start: 20071011, end: 20071015
  4. SODIUM POTASSIUM MAGNESIUM (SODIUM POTASSIUM MAGNESIUM COMBINED DRUG) [Suspect]
     Indication: HYPONATRAEMIA
     Dosage: 20.00 ML, INTRAVENOUS
     Route: 042
     Dates: start: 20071013
  5. VORICONAZOLE(VORICONAZOLE) [Suspect]
     Indication: PNEUMONIA FUNGAL
     Dosage: 480.00 MG, INTRAVENOUS
     Route: 042
     Dates: start: 20071017, end: 20071018
  6. ITRACONAZOLE [Suspect]
     Indication: PROPHYLAXIS
     Dosage: 200.00 MG, ORAL
     Route: 048
     Dates: start: 20070928, end: 20071016
  7. HYDROCORTONE (HYDROCORTISONE) [Concomitant]
  8. SULFAMETHOXAZOLE AND TRIMETHOPRIM [Concomitant]
  9. CLARITHROMYCIN [Concomitant]
  10. TANNALBIN (ALBUMIN TANNATE) [Concomitant]

REACTIONS (15)
  - ANAEMIA [None]
  - CONSTIPATION [None]
  - DIARRHOEA [None]
  - HEPATIC FUNCTION ABNORMAL [None]
  - HERPES ZOSTER [None]
  - HYPONATRAEMIA [None]
  - LYMPHOCYTE COUNT DECREASED [None]
  - NEUROGENIC BLADDER [None]
  - PLATELET COUNT DECREASED [None]
  - PNEUMONIA FUNGAL [None]
  - PROTEINURIA [None]
  - PSYCHIATRIC SYMPTOM [None]
  - RENAL TUBULAR DISORDER [None]
  - SPEECH DISORDER [None]
  - WHITE BLOOD CELL COUNT DECREASED [None]
